FAERS Safety Report 7626790-2 (Version None)
Quarter: 2011Q3

REPORT INFORMATION
  Report Type: 
  Country: None (occurrence: None)
  Receive Date: 20110721
  Receipt Date: 20110715
  Transmission Date: 20111222
  Serious: Yes (Hospitalization)
  Sender: FDA-Public Use
  Company Number: US-GILEAD-2011-0041020

PATIENT
  Sex: Female
  Weight: 101.24 kg

DRUGS (14)
  1. COUMADIN [Concomitant]
  2. LOVENOX [Concomitant]
  3. PREDNISONE [Concomitant]
  4. FERROUS SULFATE TAB [Concomitant]
  5. IMDUR [Concomitant]
  6. SYNTHROID [Concomitant]
  7. LETAIRIS [Suspect]
     Indication: PULMONARY ARTERIAL HYPERTENSION
     Route: 048
     Dates: start: 20081112
  8. MIRAPEX [Concomitant]
  9. LORATADINE [Concomitant]
  10. SPIRIVA [Concomitant]
  11. ASPIRIN [Concomitant]
  12. VENTOLIN HFA [Concomitant]
  13. LASIX [Concomitant]
  14. OMEPRAZOLE [Concomitant]

REACTIONS (1)
  - MENORRHAGIA [None]
